FAERS Safety Report 7050986-4 (Version None)
Quarter: 2010Q4

REPORT INFORMATION
  Report Type: 
  Country: None (occurrence: None)
  Receive Date: 20101019
  Receipt Date: 20101012
  Transmission Date: 20110411
  Serious: Yes (Other)
  Sender: FDA-Public Use
  Company Number: US-RB-014704-10

PATIENT
  Age: 36 Year
  Sex: Male

DRUGS (4)
  1. SUBOXONE TABLET [Suspect]
     Route: 060
     Dates: start: 20100825, end: 20100101
  2. SUBOXONE TABLET [Suspect]
     Indication: DRUG DEPENDENCE
     Dosage: CONSUMER REPORTS TAKING LESS THAN PRESCRIBED, EXACT DOSING DETAILS UNKNOWN
     Route: 065
     Dates: start: 20100101
  3. AMBIEN [Suspect]
     Indication: INSOMNIA
     Dosage: DOSING DETAILS UNKNOWN
     Route: 065
  4. ALCOHOL [Suspect]
     Indication: ALCOHOL ABUSE
     Dosage: DOSING DETAILS UNKNOWN
     Route: 065

REACTIONS (7)
  - ANXIETY [None]
  - FEELING OF BODY TEMPERATURE CHANGE [None]
  - INTENTIONAL DRUG MISUSE [None]
  - LOSS OF CONSCIOUSNESS [None]
  - PANIC ATTACK [None]
  - ROAD TRAFFIC ACCIDENT [None]
  - SLEEP DISORDER [None]
